FAERS Safety Report 5841868-1 (Version None)
Quarter: 2008Q3

REPORT INFORMATION
  Report Type: 
  Country: None (occurrence: None)
  Receive Date: 20080812
  Receipt Date: 20080801
  Transmission Date: 20090109
  Serious: Yes (Other)
  Sender: FDA-Public Use
  Company Number: US-AMGEN-US298875

PATIENT
  Sex: Male

DRUGS (16)
  1. EPOGEN [Suspect]
     Indication: RENAL FAILURE CHRONIC
     Route: 058
     Dates: start: 20041001
  2. PHOSLO [Concomitant]
  3. NIACIN [Concomitant]
  4. METOPROLOL SUCCINATE [Concomitant]
  5. CALCITRIOL [Concomitant]
  6. OS-CAL [Concomitant]
  7. ANDROGEL [Concomitant]
     Route: 061
  8. LEVOCARNITINE [Concomitant]
     Route: 048
  9. ASCORBIC ACID [Concomitant]
  10. VENOFER [Concomitant]
     Route: 042
  11. MINOXIDIL [Concomitant]
  12. FELODIPINE [Concomitant]
  13. KLOR-CON [Concomitant]
  14. VICODIN [Concomitant]
  15. LIPITOR [Concomitant]
  16. NEPHRO-VITE [Concomitant]

REACTIONS (2)
  - BLOOD PARATHYROID HORMONE INCREASED [None]
  - HAEMOGLOBIN DECREASED [None]
